FAERS Safety Report 4924281-0 (Version None)
Quarter: 2006Q1

REPORT INFORMATION
  Report Type: 
  Country: None (occurrence: None)
  Receive Date: 20060227
  Receipt Date: 20060216
  Transmission Date: 20060701
  Serious: Yes (Hospitalization)
  Sender: FDA-Public Use
  Company Number: US-AVENTIS-200611649US

PATIENT
  Age: 58 Year
  Sex: Male
  Weight: 92 kg

DRUGS (2)
  1. KETEK [Suspect]
     Indication: PNEUMONIA
     Route: 048
     Dates: start: 20060101, end: 20060101
  2. ANTACID TAB [Concomitant]
     Dosage: DOSE: UNK

REACTIONS (2)
  - BLOOD CREATININE INCREASED [None]
  - RENAL FAILURE [None]
